FAERS Safety Report 11749843 (Version 1)
Quarter: 2015Q4

REPORT INFORMATION
  Report Type: Spontaneous
  Country: US (occurrence: None)
  Receive Date: 20151117
  Receipt Date: 20151117
  Transmission Date: 20160304
  Serious: Yes (Disabling, Other)
  Sender: FDA-Public Use
  Company Number: None

PATIENT
  Age: 64 Year
  Sex: Male
  Weight: 71.67 kg

DRUGS (3)
  1. VITAMIN C [Concomitant]
     Active Substance: ASCORBIC ACID
  2. FISH OIL [Concomitant]
     Active Substance: FISH OIL
  3. ATORVASTATIN CALCIUM 20MG 20MG LEK PHARMACEUTICALS FOR SANDOZ INC [Suspect]
     Active Substance: ATORVASTATIN CALCIUM
     Indication: BLOOD CHOLESTEROL ABNORMAL
     Dosage: 1/2 TAB A DAY OR 1 EVERY OTHER
     Route: 048
     Dates: start: 20141219, end: 20150304

REACTIONS (5)
  - Weight decreased [None]
  - Constipation [None]
  - Haemorrhoids [None]
  - Pruritus [None]
  - Rash [None]
